FAERS Safety Report 11663444 (Version 1)
Quarter: 2015Q4

REPORT INFORMATION
  Report Type: Spontaneous
  Country: US (occurrence: US)
  Receive Date: 20151027
  Receipt Date: 20151027
  Transmission Date: 20160304
  Serious: No
  Sender: FDA-Public Use
  Company Number: US-PFIZER INC-2015350099

PATIENT
  Age: 39 Year
  Sex: Male
  Weight: 153 kg

DRUGS (5)
  1. LYRICA [Suspect]
     Active Substance: PREGABALIN
     Indication: NEURALGIA
     Dosage: 150 MG, 2X/DAY
     Dates: start: 201504
  2. LYRICA [Suspect]
     Active Substance: PREGABALIN
     Dosage: 75MG TWO IN THE MORNING AND TWO AT NIGHT
  3. PRILOSEC [Concomitant]
     Active Substance: OMEPRAZOLE MAGNESIUM
  4. LYRICA [Suspect]
     Active Substance: PREGABALIN
     Indication: NERVE INJURY
     Dosage: 75 MG, 2X/DAY
     Dates: start: 20150218
  5. LYRICA [Suspect]
     Active Substance: PREGABALIN
     Dosage: 75 MG
     Dates: start: 20150926

REACTIONS (5)
  - Joint range of motion decreased [Not Recovered/Not Resolved]
  - Somnolence [Not Recovered/Not Resolved]
  - Drug ineffective [Unknown]
  - Expired product administered [Unknown]
  - Insomnia [Unknown]

NARRATIVE: CASE EVENT DATE: 20150926
